FAERS Safety Report 7526081-4 (Version None)
Quarter: 2011Q2

REPORT INFORMATION
  Report Type: 
  Country: None (occurrence: None)
  Receive Date: 20110603
  Receipt Date: 20110603
  Transmission Date: 20111010
  Serious: Yes (Hospitalization)
  Sender: FDA-Public Use
  Company Number: None

PATIENT
  Sex: Male
  Weight: 83.4 kg

DRUGS (4)
  1. LEUCOVORIN CALCIUM [Suspect]
     Dosage: 2584 MG
     Dates: end: 20110208
  2. FLUOROURACIL [Suspect]
     Dosage: 7819 MG
     Dates: end: 20110208
  3. BEVACIZUMAB (RHUMAB VEGF) [Suspect]
     Dosage: 1388 MG
     Dates: end: 20110208
  4. OXALIPLATIN (ELOXATIN) [Suspect]
     Dosage: 303 MG
     Dates: end: 20110208

REACTIONS (3)
  - PNEUMOTHORAX [None]
  - PULMONARY FIBROSIS [None]
  - PNEUMONITIS [None]
